FAERS Safety Report 10279591 (Version 2)
Quarter: 2014Q3

REPORT INFORMATION
  Report Type: Spontaneous
  Country: JP (occurrence: JP)
  Receive Date: 20140707
  Receipt Date: 20140722
  Transmission Date: 20150326
  Serious: Yes (Hospitalization)
  Sender: FDA-Public Use
  Company Number: JP-JNJFOC-20140619320

PATIENT
  Age: 80 Year
  Sex: Female
  Weight: 53 kg

DRUGS (11)
  1. MAGLAX [Concomitant]
     Active Substance: MAGNESIUM OXIDE
     Route: 048
  2. FLORID ORAL GEL 2% [Suspect]
     Active Substance: MICONAZOLE
     Indication: ORAL CANDIDIASIS
     Route: 049
     Dates: start: 20140530
  3. GLACTIV [Concomitant]
     Active Substance: SITAGLIPTIN
     Route: 048
  4. KAYEXALATE [Concomitant]
     Active Substance: SODIUM POLYSTYRENE SULFONATE
     Route: 048
  5. WARFARIN POTASSIUM [Interacting]
     Active Substance: WARFARIN POTASSIUM
     Indication: PRODUCT USED FOR UNKNOWN INDICATION
     Route: 065
     Dates: end: 20140625
  6. FLORID ORAL GEL 2% [Suspect]
     Active Substance: MICONAZOLE
     Route: 049
  7. DIOVAN [Concomitant]
     Active Substance: VALSARTAN
     Route: 048
  8. LASIX [Concomitant]
     Active Substance: FUROSEMIDE
     Route: 065
  9. NEXIUM [Concomitant]
     Active Substance: ESOMEPRAZOLE MAGNESIUM
     Route: 048
  10. MYSLEE [Concomitant]
     Active Substance: ZOLPIDEM TARTRATE
     Route: 048
  11. LIVALO [Concomitant]
     Active Substance: PITAVASTATIN CALCIUM
     Route: 048

REACTIONS (3)
  - Prothrombin time prolonged [Recovering/Resolving]
  - Haemorrhage subcutaneous [Recovering/Resolving]
  - Drug interaction [Recovering/Resolving]

NARRATIVE: CASE EVENT DATE: 20140625
